FAERS Safety Report 18857734 (Version 1)
Quarter: 2021Q1

REPORT INFORMATION
  Report Type: Spontaneous
  Country: US (occurrence: US)
  Receive Date: 20210208
  Receipt Date: 20210208
  Transmission Date: 20210420
  Serious: Yes (Death)
  Sender: FDA-Public Use
  Company Number: US-ROCHE-2762852

PATIENT
  Age: 75 Year
  Sex: Male

DRUGS (16)
  1. NYSTATIN. [Concomitant]
     Active Substance: NYSTATIN
  2. KETOROLAC [Concomitant]
     Active Substance: KETOROLAC TROMETHAMINE
  3. TAMSULOSIN [Concomitant]
     Active Substance: TAMSULOSIN
  4. CARBIDOPA;LEVODOPA [Concomitant]
     Active Substance: CARBIDOPA\LEVODOPA
  5. TRAZODONE [Concomitant]
     Active Substance: TRAZODONE HYDROCHLORIDE
  6. IPRATROPIUM/ALBUTEROL [Concomitant]
     Active Substance: ALBUTEROL\IPRATROPIUM
  7. PREDNISONE. [Concomitant]
     Active Substance: PREDNISONE
  8. TRELEGY ELLIPTA [Concomitant]
     Active Substance: FLUTICASONE FUROATE\UMECLIDINIUM BROMIDE\VILANTEROL TRIFENATATE
  9. GLYCOPYRROLATE. [Concomitant]
     Active Substance: GLYCOPYRROLATE
  10. MYRBETRIQ [Concomitant]
     Active Substance: MIRABEGRON
  11. PANTOPRAZOLE [Concomitant]
     Active Substance: PANTOPRAZOLE
  12. ESBRIET [Suspect]
     Active Substance: PIRFENIDONE
     Indication: IDIOPATHIC PULMONARY FIBROSIS
     Dosage: 3 TABLETS
     Route: 048
     Dates: start: 20210124
  13. ENTACAPONE. [Concomitant]
     Active Substance: ENTACAPONE
  14. FINASTERIDE. [Concomitant]
     Active Substance: FINASTERIDE
  15. METHIMAZOLE. [Concomitant]
     Active Substance: METHIMAZOLE
  16. WIXELA INHUB [Concomitant]
     Active Substance: FLUTICASONE PROPIONATE\SALMETEROL XINAFOATE

REACTIONS (1)
  - Death [Fatal]

NARRATIVE: CASE EVENT DATE: 20210124
